FAERS Safety Report 24084455 (Version 1)
Quarter: 2024Q3

REPORT INFORMATION
  Report Type: Spontaneous
  Country: US (occurrence: None)
  Receive Date: 20240711
  Receipt Date: 20240711
  Transmission Date: 20241017
  Serious: Yes (Disabling, Other)
  Sender: Public
  Company Number: None

PATIENT
  Age: 45 Year
  Sex: Female
  Weight: 57.6 kg

DRUGS (3)
  1. LUMIFY [Suspect]
     Active Substance: BRIMONIDINE TARTRATE
     Indication: Ocular hyperaemia
     Dates: start: 20240708, end: 20240711
  2. MODAFINIL AND DEXTROAMPHETAMINE SALTS [Concomitant]
  3. SIIDRA EYE DROPS [Concomitant]

REACTIONS (21)
  - Chills [None]
  - Feeling cold [None]
  - Pain in extremity [None]
  - Cyanosis [None]
  - Cyanosis [None]
  - Oxygen saturation abnormal [None]
  - Electrocardiogram abnormal [None]
  - Malaise [None]
  - Peripheral swelling [None]
  - Pain in extremity [None]
  - Feeling hot [None]
  - Muscle spasms [None]
  - Feeling abnormal [None]
  - Miosis [None]
  - Eye swelling [None]
  - Halo vision [None]
  - Diplopia [None]
  - Eyelid ptosis [None]
  - Fatigue [None]
  - Tinnitus [None]
  - Ear congestion [None]

NARRATIVE: CASE EVENT DATE: 20240711
